FAERS Safety Report 6000262-3 (Version None)
Quarter: 2008Q4

REPORT INFORMATION
  Report Type: 
  Country: None (occurrence: None)
  Receive Date: 20081215
  Receipt Date: 20081209
  Transmission Date: 20090506
  Serious: Yes (Life-Threatening, Hospitalization, Disabling)
  Sender: FDA-Public Use
  Company Number: US-MERCK-0811USA03523

PATIENT
  Age: 53 Year
  Sex: Male

DRUGS (7)
  1. JANUMET [Suspect]
     Indication: TYPE 2 DIABETES MELLITUS
     Route: 048
     Dates: start: 20080101
  2. METFORMIN [Concomitant]
     Route: 065
     Dates: start: 20080101, end: 20080101
  3. JANUVIA [Concomitant]
     Route: 048
     Dates: start: 20080101, end: 20080101
  4. AVANDIA [Concomitant]
     Route: 065
  5. GLUCOTROL [Concomitant]
     Route: 065
  6. NORVASC [Concomitant]
     Route: 065
  7. ZOCOR [Concomitant]
     Route: 048

REACTIONS (2)
  - BLOOD CREATINE INCREASED [None]
  - LACTIC ACIDOSIS [None]
